FAERS Safety Report 4903326-8 (Version None)
Quarter: 2006Q1

REPORT INFORMATION
  Report Type: 
  Country: None (occurrence: None)
  Receive Date: 20060206
  Receipt Date: 20060206
  Transmission Date: 20060701
  Serious: No
  Sender: FDA-Public Use
  Company Number: None

PATIENT
  Age: 63 Year
  Sex: Male
  Weight: 138 kg

DRUGS (1)
  1. IMIPENEM/CILASTATIN [Suspect]
     Indication: CELLULITIS
     Dosage: 250MG IV Q 6 H
     Route: 042

REACTIONS (3)
  - RASH GENERALISED [None]
  - RASH MACULO-PAPULAR [None]
  - RASH PRURITIC [None]
